FAERS Safety Report 4486436-1 (Version None)
Quarter: 2004Q4

REPORT INFORMATION
  Report Type: 
  Country: None (occurrence: None)
  Receive Date: 20041026
  Receipt Date: 20041026
  Transmission Date: 20050328
  Serious: Yes (Hospitalization, Other)
  Sender: FDA-Public Use
  Company Number: None

PATIENT
  Age: 26 Year
  Sex: Female
  Weight: 92.0802 kg

DRUGS (1)
  1. ZOLOFT [Suspect]
     Indication: ANXIETY
     Dosage: ZOLOFT 150 ONCE DAILY ORAL
     Route: 048
     Dates: start: 20040717, end: 20041025

REACTIONS (7)
  - ADJUSTMENT DISORDER [None]
  - FEAR [None]
  - HOMICIDAL IDEATION [None]
  - POSTPARTUM DEPRESSION [None]
  - PSYCHOTIC DISORDER [None]
  - SUICIDAL IDEATION [None]
  - THYROIDITIS [None]
